FAERS Safety Report 5906547-0 (Version None)
Quarter: 2008Q4

REPORT INFORMATION
  Report Type: 
  Country: None (occurrence: None)
  Receive Date: 20081002
  Receipt Date: 20080922
  Transmission Date: 20090506
  Serious: No
  Sender: FDA-Public Use
  Company Number: US-B.I. PHARMACEUTICALS,INC./RIDGEFIELD-2008-BP-14793BP

PATIENT
  Age: 85 Year
  Sex: Female

DRUGS (5)
  1. SPIRIVA [Suspect]
     Indication: BRONCHIECTASIS
     Dosage: 18MCG
     Route: 055
     Dates: start: 20060101
  2. LEVOXYL [Concomitant]
  3. PRILOSEC [Concomitant]
  4. LIPITOR [Concomitant]
  5. XOPENEX [Concomitant]

REACTIONS (1)
  - DYSGEUSIA [None]
